FAERS Safety Report 6964896-1 (Version None)
Quarter: 2010Q3

REPORT INFORMATION
  Report Type: 
  Country: None (occurrence: None)
  Receive Date: 20100903
  Receipt Date: 20100826
  Transmission Date: 20110219
  Serious: Yes (Other)
  Sender: FDA-Public Use
  Company Number: TR-ELI_LILLY_AND_COMPANY-TR201008008288

PATIENT
  Age: 35 Year
  Sex: Female

DRUGS (3)
  1. HUMULIN N [Suspect]
     Indication: GESTATIONAL DIABETES
     Dosage: 16 U, DAILY (1/D)
     Route: 058
     Dates: start: 20100625
  2. HUMULIN R [Suspect]
     Indication: GESTATIONAL DIABETES
     Dosage: 45 U, 3/D
     Route: 058
     Dates: start: 20100625
  3. VITAMINS [Concomitant]
     Dates: start: 20100625, end: 20100726

REACTIONS (4)
  - ABORTION SPONTANEOUS [None]
  - DEPRESSED MOOD [None]
  - DRUG EXPOSURE DURING PREGNANCY [None]
  - STRESS [None]
